FAERS Safety Report 15746302 (Version 3)
Quarter: 2019Q1

REPORT INFORMATION
  Report Type: Spontaneous
  Country: US (occurrence: US)
  Receive Date: 20181220
  Receipt Date: 20190109
  Transmission Date: 20190417
  Serious: No
  Sender: FDA-Public Use
  Company Number: PHEH2018US053767

PATIENT
  Sex: Female

DRUGS (1)
  1. CLOBETASOL PROPIONATE SANDOZ [Suspect]
     Active Substance: CLOBETASOL PROPIONATE
     Indication: VULVAL OEDEMA
     Dosage: UNK UNK, Q2W
     Route: 061
     Dates: start: 20180926

REACTIONS (2)
  - Product physical consistency issue [Unknown]
  - Drug ineffective [Unknown]
